FAERS Safety Report 7473690-7 (Version None)
Quarter: 2011Q1

REPORT INFORMATION
  Report Type: 
  Country: None (occurrence: None)
  Receive Date: 20110302
  Receipt Date: 20100827
  Transmission Date: 20110831
  Serious: Yes (Death)
  Sender: FDA-Public Use
  Company Number: 163-21880-10070461

PATIENT
  Age: 82 Year
  Sex: Female

DRUGS (4)
  1. REVLIMID [Suspect]
     Indication: MULTIPLE MYELOMA
     Dosage: 5 MG, D1-20, PO
     Route: 048
     Dates: start: 20100609, end: 20100629
  2. REVLIMID [Suspect]
  3. PREDNISONE [Concomitant]
  4. MELPHALAN HYDROCHLORIDE [Concomitant]

REACTIONS (5)
  - MULTIPLE MYELOMA [None]
  - ASTHENIA [None]
  - DEHYDRATION [None]
  - DECREASED APPETITE [None]
  - DISEASE PROGRESSION [None]
